FAERS Safety Report 15512455 (Version 1)
Quarter: 2018Q4

REPORT INFORMATION
  Report Type: Spontaneous
  Country: US (occurrence: US)
  Receive Date: 20181017
  Receipt Date: 20181017
  Transmission Date: 20190205
  Serious: Yes (Life-Threatening, Hospitalization)
  Sender: FDA-Public Use
  Company Number: None

PATIENT
  Age: 48 Year
  Sex: Male
  Weight: 137 kg

DRUGS (1)
  1. OLARATUMAB [Suspect]
     Active Substance: OLARATUMAB
     Indication: SYNOVIAL SARCOMA METASTATIC
     Dates: start: 20180824, end: 20180824

REACTIONS (5)
  - Anaphylactic shock [None]
  - Flushing [None]
  - Respiratory arrest [None]
  - Cardiac arrest [None]
  - Paraesthesia [None]

NARRATIVE: CASE EVENT DATE: 20180824
